FAERS Safety Report 8384215-6 (Version None)
Quarter: 2012Q2

REPORT INFORMATION
  Report Type: 
  Country: None (occurrence: None)
  Receive Date: 20120524
  Receipt Date: 20120518
  Transmission Date: 20120825
  Serious: Yes (Other)
  Sender: FDA-Public Use
  Company Number: US-ALEXION PHARMACEUTICALS INC.-A201200964

PATIENT
  Sex: Female
  Weight: 132 kg

DRUGS (7)
  1. SOLIRIS [Suspect]
     Indication: PAROXYSMAL NOCTURNAL HAEMOGLOBINURIA
     Dosage: 900 MG Q12D
     Route: 042
     Dates: start: 20120511
  2. SOLIRIS [Suspect]
     Dosage: 900 MG, Q2W
     Route: 042
     Dates: start: 20110506, end: 20120511
  3. FOLIC ACID [Concomitant]
     Indication: ANAEMIA VITAMIN B12 DEFICIENCY
     Dosage: 1 MG, QD
     Route: 048
  4. BLOOD CELLS, PACKED HUMAN [Concomitant]
     Indication: HAEMOGLOBIN DECREASED
     Dosage: STANDING ORDERS IF HGB {9 GIVE 2 UNITS OF PRBC
  5. SOLIRIS [Suspect]
     Dosage: 600 MG, QW
     Route: 042
     Dates: start: 20110408, end: 20110506
  6. FIORICET [Concomitant]
     Indication: MIGRAINE
     Dosage: 50/325-40 PRN
     Route: 048
  7. PHENERGAN [Concomitant]
     Indication: NAUSEA
     Dosage: 25 MG, QID
     Route: 048

REACTIONS (1)
  - HAEMOGLOBIN DECREASED [None]
